FAERS Safety Report 23034402 (Version 1)
Quarter: 2023Q4

REPORT INFORMATION
  Report Type: Spontaneous
  Country: US (occurrence: US)
  Receive Date: 20231005
  Receipt Date: 20231005
  Transmission Date: 20240110
  Serious: Yes (Death, Life-Threatening, Hospitalization, Other)
  Sender: FDA-Public Use
  Company Number: US-SUN PHARMACEUTICAL INDUSTRIES LTD-2023R1-410551

PATIENT
  Age: 23 Year
  Sex: Female

DRUGS (1)
  1. NAPROXEN [Suspect]
     Active Substance: NAPROXEN
     Indication: Metabolic acidosis
     Dosage: 500 MILLIGRAM
     Route: 065

REACTIONS (13)
  - Cardiac arrest [Fatal]
  - Overdose [Unknown]
  - Toxicity to various agents [Unknown]
  - Generalised tonic-clonic seizure [Unknown]
  - Cardiotoxicity [Unknown]
  - Multiple organ dysfunction syndrome [Unknown]
  - Cardiac failure acute [Unknown]
  - Myocardial ischaemia [Unknown]
  - Coagulopathy [Unknown]
  - Renal failure [Unknown]
  - Acute respiratory distress syndrome [Unknown]
  - Hypoxia [Unknown]
  - Acidosis [Unknown]
